FAERS Safety Report 15783309 (Version 1)
Quarter: 2019Q1

REPORT INFORMATION
  Report Type: Spontaneous
  Country: US (occurrence: US)
  Receive Date: 20190102
  Receipt Date: 20190102
  Transmission Date: 20190417
  Serious: No
  Sender: FDA-Public Use
  Company Number: US-TEVA-2018-US-984667

PATIENT
  Sex: Male

DRUGS (1)
  1. CLONIDINE TDS [Suspect]
     Active Substance: CLONIDINE
     Route: 062
     Dates: start: 20181123, end: 20181130

REACTIONS (1)
  - Tongue exfoliation [Unknown]

NARRATIVE: CASE EVENT DATE: 20181123
